FAERS Safety Report 9680751 (Version 1)
Quarter: 2013Q4

REPORT INFORMATION
  Report Type: Spontaneous
  Country: US (occurrence: None)
  Receive Date: 20131108
  Receipt Date: 20131108
  Transmission Date: 20140711
  Serious: No
  Sender: FDA-Public Use
  Company Number: None

PATIENT
  Age: 43 Year
  Sex: Female

DRUGS (1)
  1. ESCITALOPRAM [Suspect]
     Indication: AFFECTIVE DISORDER
     Route: 048
     Dates: start: 20120824

REACTIONS (4)
  - Dizziness [None]
  - Weight increased [None]
  - Loss of libido [None]
  - Product substitution issue [None]
